FAERS Safety Report 7988072-9 (Version None)
Quarter: 2011Q4

REPORT INFORMATION
  Report Type: 
  Country: None (occurrence: None)
  Receive Date: 20111216
  Receipt Date: 20110607
  Transmission Date: 20120403
  Serious: No
  Sender: FDA-Public Use
  Company Number: US-BRISTOL-MYERS SQUIBB COMPANY-15795602

PATIENT
  Sex: Female

DRUGS (1)
  1. ABILIFY [Suspect]
     Indication: BIPOLAR DISORDER
     Dosage: 7.5MG INCRSED  TO 15MG, THEN A WEEK LATER, INCRSED IT AGAIN TO 30MG, RESTARTED, CURRENTLY ON 15MG

REACTIONS (2)
  - MALAISE [None]
  - SEBORRHOEA [None]
